FAERS Safety Report 14676704 (Version 1)
Quarter: 2018Q1

REPORT INFORMATION
  Report Type: Spontaneous
  Country: US (occurrence: US)
  Receive Date: 20180324
  Receipt Date: 20180324
  Transmission Date: 20180509
  Serious: No
  Sender: FDA-Public Use
  Company Number: US-ASTRAZENECA-2018SE36917

PATIENT
  Sex: Female

DRUGS (1)
  1. TAGRISSO [Suspect]
     Active Substance: OSIMERTINIB
     Indication: ADENOCARCINOMA
     Route: 048
     Dates: start: 201801

REACTIONS (3)
  - Product use in unapproved indication [Unknown]
  - Cardiac failure [Unknown]
  - Off label use [Unknown]
